FAERS Safety Report 13036316 (Version 1)
Quarter: 2016Q4

REPORT INFORMATION
  Report Type: Spontaneous
  Country: TW (occurrence: TW)
  Receive Date: 20161216
  Receipt Date: 20161216
  Transmission Date: 20170207
  Serious: Yes (Hospitalization, Other)
  Sender: FDA-Public Use
  Company Number: TW-ELI_LILLY_AND_COMPANY-TW201612006373

PATIENT
  Age: 60 Year
  Sex: Male

DRUGS (6)
  1. CISPLATIN. [Suspect]
     Active Substance: CISPLATIN
     Dosage: 45 MG, WEEKLY (1/W)
     Route: 042
  2. ERBITUX [Suspect]
     Active Substance: CETUXIMAB
     Dosage: 380 MG, WEEKLY (1/W)
     Route: 042
  3. ERBITUX [Suspect]
     Active Substance: CETUXIMAB
     Dosage: 362 MG, WEEKLY (1/W)
     Route: 042
  4. ERBITUX [Suspect]
     Active Substance: CETUXIMAB
     Dosage: 365 MG, WEEKLY (1/W)
     Route: 042
  5. ERBITUX [Suspect]
     Active Substance: CETUXIMAB
     Indication: OROPHARYNGEAL CANCER
     Dosage: 600 MG, WEEKLY (1/W)
     Route: 042
  6. CISPLATIN. [Suspect]
     Active Substance: CISPLATIN
     Indication: OROPHARYNGEAL CANCER
     Dosage: 50 MG, WEEKLY (1/W)
     Route: 042

REACTIONS (1)
  - Leukopenia [Unknown]
